FAERS Safety Report 4445692-6 (Version None)
Quarter: 2004Q3

REPORT INFORMATION
  Report Type: 
  Country: None (occurrence: None)
  Receive Date: 20040902
  Receipt Date: 20040817
  Transmission Date: 20050211
  Serious: Yes (Life-Threatening, Hospitalization)
  Sender: FDA-Public Use
  Company Number: 2004-UK-00798UK

PATIENT
  Age: 78 Year
  Sex: Male

DRUGS (8)
  1. MOBIC [Suspect]
     Indication: MUSCULOSKELETAL PAIN
     Dosage: 15 MG ONCE DAILY (15 MG ONCE DAILY)PO
     Route: 048
     Dates: start: 20040201, end: 20040701
  2. ASPIRIN [Suspect]
     Indication: MYOCARDIAL INFARCTION
     Dosage: 75 MG ONCE DAILY (75 MG ONCE DAILY), PO
     Route: 048
     Dates: start: 19900101, end: 20040701
  3. SIMVASTATIN [Concomitant]
  4. LISINOPRIL [Concomitant]
  5. QUININE (QUININE) [Concomitant]
  6. DOCUSATE (DOCUSATE) [Concomitant]
  7. CO-PROXAMOL (APOREX) [Concomitant]
  8. LACIDIPINE (LACIDIPINE) [Concomitant]

REACTIONS (4)
  - CIRCULATORY COLLAPSE [None]
  - FAECES DISCOLOURED [None]
  - GASTRIC ULCER [None]
  - HAEMOGLOBIN DECREASED [None]
